FAERS Safety Report 10056050 (Version 1)
Quarter: 2014Q2

REPORT INFORMATION
  Report Type: Spontaneous
  Country: FR (occurrence: FR)
  Receive Date: 20140403
  Receipt Date: 20140403
  Transmission Date: 20141212
  Serious: Yes (Other)
  Sender: FDA-Public Use
  Company Number: FR-TEVA-471452ISR

PATIENT
  Age: 16 Year
  Sex: Male

DRUGS (11)
  1. RISPERIDONE [Suspect]
     Dosage: 1 MILLIGRAM DAILY;
     Route: 048
  2. CLONAZEPAM [Suspect]
     Dosage: .05 MG/KG DAILY;
     Route: 048
  3. CLONAZEPAM [Suspect]
     Dosage: 0.05 MG/KG/D
     Route: 042
  4. CLONAZEPAM [Suspect]
     Route: 048
  5. CLONAZEPAM [Suspect]
     Dosage: 0.1 MG/KG/D
     Route: 042
  6. LORAZEPAM [Suspect]
     Dosage: 5 MILLIGRAM DAILY; SLOW IV DRIP
     Route: 041
  7. CARBAMAZEPINE [Suspect]
     Dosage: 10 MG/KG DAILY;
     Route: 048
  8. OLANZAPINE [Suspect]
     Dosage: 5 MILLIGRAM DAILY;
     Route: 065
  9. OLANZAPINE [Suspect]
     Dosage: 20 MILLIGRAM DAILY;
     Route: 065
  10. CLOZAPINE [Suspect]
     Dosage: 25 MILLIGRAM DAILY; 25 MG/D, THEN INCREASED BY 25 MG/W
     Route: 065
  11. CLOZAPINE [Suspect]
     Dosage: 250 MILLIGRAM DAILY;
     Route: 065

REACTIONS (5)
  - Catatonia [Recovering/Resolving]
  - Weight increased [Recovering/Resolving]
  - Sedation [Unknown]
  - Fatigue [Unknown]
  - Parkinsonism [Unknown]
